FAERS Safety Report 7242607-2 (Version None)
Quarter: 2011Q1

REPORT INFORMATION
  Report Type: 
  Country: None (occurrence: None)
  Receive Date: 20110125
  Receipt Date: 20110120
  Transmission Date: 20110831
  Serious: Yes (Life-Threatening, Hospitalization)
  Sender: FDA-Public Use
  Company Number: US-JNJFOC-20110103967

PATIENT
  Age: 61 Year
  Sex: Male

DRUGS (4)
  1. ULTRAM [Suspect]
     Indication: PRODUCT USED FOR UNKNOWN INDICATION
     Route: 065
  2. DULOXETINE [Suspect]
     Indication: PRODUCT USED FOR UNKNOWN INDICATION
  3. BUPROPION [Suspect]
     Indication: PRODUCT USED FOR UNKNOWN INDICATION
  4. NONSTEROIDAL ANTIINFLAMMATORY DRUGS [Suspect]
     Indication: PRODUCT USED FOR UNKNOWN INDICATION
     Route: 065

REACTIONS (6)
  - RENAL IMPAIRMENT [None]
  - UNRESPONSIVE TO STIMULI [None]
  - RESPIRATORY DEPRESSION [None]
  - AGITATION [None]
  - MULTIPLE DRUG OVERDOSE [None]
  - PARTIAL SEIZURES [None]
